FAERS Safety Report 9266991 (Version 1)
Quarter: 2013Q2

REPORT INFORMATION
  Report Type: Spontaneous
  Country: US (occurrence: None)
  Receive Date: 20130502
  Receipt Date: 20130502
  Transmission Date: 20140414
  Serious: Yes (Life-Threatening, Hospitalization)
  Sender: FDA-Public Use
  Company Number: None

PATIENT
  Age: 93 Year
  Sex: Female

DRUGS (2)
  1. WARFARIN 5 MG [Suspect]
     Indication: ATRIAL FIBRILLATION
     Dosage: NOT MONDAY
     Route: 048
     Dates: start: 20130322, end: 20130410
  2. WARFARIN [Suspect]
     Indication: ATRIAL FIBRILLATION
     Dosage: ON MONDAY ONLY
     Route: 048
     Dates: start: 20130322, end: 20130410

REACTIONS (2)
  - Haemorrhage [None]
  - International normalised ratio increased [None]
